FAERS Safety Report 8966727 (Version 1)
Quarter: 2012Q4

REPORT INFORMATION
  Report Type: 
  Country: IT (occurrence: IT)
  Receive Date: 20121217
  Receipt Date: 20121217
  Transmission Date: 20130627
  Serious: Yes (Hospitalization)
  Sender: FDA-Public Use
  Company Number: IT-SANOFI-AVENTIS-2012SA089401

PATIENT
  Age: 81 Year
  Sex: Female

DRUGS (6)
  1. LASIX [Suspect]
     Indication: DRUG USE FOR UNKNOWN INDICATION
     Dosage: strength:25mg
     Route: 048
     Dates: start: 20120101, end: 20121115
  2. LANSOX [Concomitant]
     Route: 048
  3. MEDROL [Concomitant]
     Route: 048
  4. HALCION [Concomitant]
     Route: 048
  5. CARDIOASPIRIN [Concomitant]
     Dosage: strength:100mg
  6. HEPARIN-FRACTION [Concomitant]

REACTIONS (3)
  - Asthenia [Unknown]
  - Cold sweat [Unknown]
  - Presyncope [Unknown]
